FAERS Safety Report 9734589 (Version 2)
Quarter: 2013Q4

REPORT INFORMATION
  Report Type: Report from Study
  Country: AU (occurrence: AU)
  Receive Date: 20131206
  Receipt Date: 20131206
  Transmission Date: 20140711
  Serious: Yes (Other)
  Sender: FDA-Public Use
  Company Number: AU-ROCHE-1095552

PATIENT
  Age: 49 Year
  Sex: Female

DRUGS (4)
  1. ACTEMRA [Suspect]
     Indication: RHEUMATOID ARTHRITIS
     Route: 042
     Dates: start: 20120130
  2. ACTEMRA [Suspect]
     Route: 042
     Dates: end: 20120413
  3. CELEBREX [Concomitant]
     Indication: ARTHRALGIA
     Route: 048
  4. SOMAC (AUSTRALIA) [Concomitant]
     Dosage: INDICATION: REFLUX
     Route: 048

REACTIONS (2)
  - Lower respiratory tract infection [Not Recovered/Not Resolved]
  - Cholecystitis [Unknown]
